FAERS Safety Report 8173338-2 (Version None)
Quarter: 2012Q1

REPORT INFORMATION
  Report Type: 
  Country: None (occurrence: None)
  Receive Date: 20120229
  Receipt Date: 20120226
  Transmission Date: 20120608
  Serious: No
  Sender: FDA-Public Use
  Company Number: US-PFIZER INC-2012050289

PATIENT
  Sex: Female
  Weight: 48 kg

DRUGS (2)
  1. LEVOXYL [Suspect]
     Indication: THYROID DISORDER
     Dosage: 0.075 MG, DAILY
     Dates: start: 20111201
  2. PRILOSEC [Concomitant]
     Indication: ANTACID THERAPY
     Dosage: DAILY
     Dates: start: 20120201

REACTIONS (4)
  - DRUG INEFFECTIVE [None]
  - MENSTRUATION IRREGULAR [None]
  - ALOPECIA [None]
  - FATIGUE [None]
